FAERS Safety Report 19649869 (Version 1)
Quarter: 2021Q3

REPORT INFORMATION
  Report Type: Other
  Country: GB (occurrence: GB)
  Receive Date: 20210803
  Receipt Date: 20210803
  Transmission Date: 20211014
  Serious: Yes (Hospitalization, Disabling, Other)
  Sender: FDA-Public Use
  Company Number: GB-GLENMARK PHARMACEUTICALS-2021GMK067033

PATIENT

DRUGS (1)
  1. MOMETASONE FUROATE. [Suspect]
     Active Substance: MOMETASONE FUROATE
     Indication: ECZEMA
     Dosage: 0.1 PERCENT
     Route: 061

REACTIONS (11)
  - Blood pressure increased [Unknown]
  - Fatigue [Unknown]
  - Insomnia [Unknown]
  - Inflammation [Not Recovered/Not Resolved]
  - Product use issue [Unknown]
  - Oedema [Unknown]
  - Swelling [Unknown]
  - Alopecia [Unknown]
  - Adrenal insufficiency [Unknown]
  - Illness [Unknown]
  - Skin exfoliation [Unknown]

NARRATIVE: CASE EVENT DATE: 20210101
